FAERS Safety Report 25974095 (Version 1)
Quarter: 2025Q4

REPORT INFORMATION
  Report Type: Spontaneous
  Country: IL (occurrence: IL)
  Receive Date: 20251029
  Receipt Date: 20251029
  Transmission Date: 20260118
  Serious: Yes (Hospitalization, Other)
  Sender: REGENERON
  Company Number: IL-BAYER-2025A141111

PATIENT
  Age: 88 Year
  Sex: Female

DRUGS (1)
  1. EYLEA HD [Suspect]
     Active Substance: AFLIBERCEPT
     Indication: Product used for unknown indication
     Dosage: UNK, ONCE, 114.3 MG/ML
     Route: 031
     Dates: start: 20251005, end: 20251005

REACTIONS (5)
  - Visual impairment [Unknown]
  - Bacteraemia [Unknown]
  - Iridocyclitis [Unknown]
  - Endophthalmitis [Unknown]
  - Inflammation [Unknown]

NARRATIVE: CASE EVENT DATE: 20251001
